FAERS Safety Report 10548351 (Version 3)
Quarter: 2015Q3

REPORT INFORMATION
  Report Type: Spontaneous
  Country: DK (occurrence: DK)
  Receive Date: 20141028
  Receipt Date: 20150707
  Transmission Date: 20151125
  Serious: Yes (Hospitalization, Disabling)
  Sender: FDA-Public Use
  Company Number: DK-BAYER-2014-155166

PATIENT
  Age: 16 Year
  Sex: Female

DRUGS (2)
  1. YASMIN [Suspect]
     Active Substance: DROSPIRENONE\ETHINYL ESTRADIOL
     Indication: CONTRACEPTION
     Dosage: UNK
     Route: 048
     Dates: start: 200912, end: 201006
  2. MAREVAN [Concomitant]
     Active Substance: WARFARIN SODIUM

REACTIONS (14)
  - Vomiting [Unknown]
  - Cerebral haemorrhage [Recovered/Resolved with Sequelae]
  - Headache [Not Recovered/Not Resolved]
  - Memory impairment [Unknown]
  - Intracranial venous sinus thrombosis [Recovered/Resolved]
  - Hemiparesis [Not Recovered/Not Resolved]
  - Intracranial venous sinus thrombosis [Recovered/Resolved with Sequelae]
  - Disturbance in attention [Not Recovered/Not Resolved]
  - Neck pain [Unknown]
  - Nausea [Unknown]
  - Hypoaesthesia [Unknown]
  - Musculoskeletal pain [Unknown]
  - Dysuria [Not Recovered/Not Resolved]
  - Fatigue [Not Recovered/Not Resolved]

NARRATIVE: CASE EVENT DATE: 201006
